FAERS Safety Report 7854708-6 (Version None)
Quarter: 2011Q3

REPORT INFORMATION
  Report Type: 
  Country: None (occurrence: None)
  Receive Date: 20110916
  Receipt Date: 20101208
  Transmission Date: 20111222
  Serious: Yes (Life-Threatening)
  Sender: FDA-Public Use
  Company Number: 770024

PATIENT

DRUGS (1)
  1. LIDOCAINE HCL [Suspect]
     Indication: ARRHYTHMIA
     Dosage: 100 MG, ONCE, INTRAVENOUS BOLUS
     Route: 040
     Dates: start: 20101021, end: 20101021

REACTIONS (1)
  - DEVICE FAILURE [None]
